FAERS Safety Report 8398145-7 (Version None)
Quarter: 2012Q2

REPORT INFORMATION
  Report Type: 
  Country: None (occurrence: None)
  Receive Date: 20120531
  Receipt Date: 20120525
  Transmission Date: 20120825
  Serious: Yes (Hospitalization, Other)
  Sender: FDA-Public Use
  Company Number: PHHY2012ES044926

PATIENT
  Age: 65 Year
  Sex: Male

DRUGS (4)
  1. FLUOROURACIL [Suspect]
     Dates: start: 20100317
  2. DOCETAXEL [Interacting]
     Dates: start: 20100317
  3. CISPLATIN [Interacting]
     Dates: start: 20100317
  4. SINTROM [Interacting]
     Route: 048
     Dates: end: 20100324

REACTIONS (7)
  - DECREASED APPETITE [None]
  - PYREXIA [None]
  - DRUG INTERACTION [None]
  - COLITIS ISCHAEMIC [None]
  - RECTAL HAEMORRHAGE [None]
  - DIARRHOEA [None]
  - MUCOSAL INFLAMMATION [None]
